FAERS Safety Report 8235024-X (Version None)
Quarter: 2012Q1

REPORT INFORMATION
  Report Type: 
  Country: None (occurrence: None)
  Receive Date: 20120322
  Receipt Date: 20120314
  Transmission Date: 20120608
  Serious: Yes (Other)
  Sender: FDA-Public Use
  Company Number: 2012SP014054

PATIENT
  Sex: Female

DRUGS (2)
  1. TEMODAR [Suspect]
     Indication: MALIGNANT MELANOMA STAGE III
  2. METFORMIN HCL [Concomitant]

REACTIONS (2)
  - GANGRENE [None]
  - OFF LABEL USE [None]
